FAERS Safety Report 7288078-1 (Version None)
Quarter: 2011Q1

REPORT INFORMATION
  Report Type: 
  Country: None (occurrence: None)
  Receive Date: 20110211
  Receipt Date: 20110208
  Transmission Date: 20110831
  Serious: Yes (Death, Hospitalization, Other)
  Sender: FDA-Public Use
  Company Number: PHHY2010US74228

PATIENT
  Sex: Male

DRUGS (11)
  1. LABETALOL [Concomitant]
  2. NIFEDIPINE [Concomitant]
  3. PREDNISONE [Concomitant]
  4. RISPERIDONE [Concomitant]
  5. TEGRETOL [Concomitant]
  6. SANDIMMUNE [Suspect]
     Indication: RENAL TRANSPLANT
     Dosage: UNK
     Dates: start: 19860101, end: 19890101
  7. NEORAL [Suspect]
     Indication: RENAL TRANSPLANT
     Dosage: UNK
     Dates: start: 19890101, end: 20080101
  8. RAPAMUNE [Suspect]
     Dosage: 1 MG 4X1DAY
     Dates: start: 20080101
  9. RAPAMUNE [Suspect]
     Dosage: 1 MG 2X1DAY
     Dates: start: 20080101
  10. VALCYTE [Concomitant]
  11. GABAPENTIN [Concomitant]

REACTIONS (6)
  - HYPERTENSION [None]
  - LYMPHADENOPATHY [None]
  - DEATH [None]
  - CONVULSION [None]
  - LYMPHOPROLIFERATIVE DISORDER [None]
  - LYMPHOMA [None]
